FAERS Safety Report 12522739 (Version 1)
Quarter: 2016Q3

REPORT INFORMATION
  Report Type: Spontaneous
  Country: FI (occurrence: FI)
  Receive Date: 20160701
  Receipt Date: 20160701
  Transmission Date: 20161109
  Serious: Yes (Hospitalization, Other)
  Sender: FDA-Public Use
  Company Number: FI-BAXALTA-2014BAX010388

PATIENT
  Age: 8 Month
  Sex: Male
  Weight: 9.7 kg

DRUGS (5)
  1. ADVATE [Suspect]
     Active Substance: ANTIHEMOPHILIC FACTOR, HUMAN RECOMBINANT
     Indication: CONTUSION
  2. ADVATE [Suspect]
     Active Substance: ANTIHEMOPHILIC FACTOR, HUMAN RECOMBINANT
     Indication: FACTOR VIII DEFICIENCY
     Dosage: UNK
     Route: 042
     Dates: start: 20140207, end: 20140217
  3. ADVATE [Suspect]
     Active Substance: ANTIHEMOPHILIC FACTOR, HUMAN RECOMBINANT
     Indication: PROPHYLAXIS
     Dosage: 1X A DAY
     Route: 065
     Dates: start: 201407
  4. CAPRILON [Concomitant]
     Indication: HAEMORRHAGE
     Dosage: 750MILLIGRAM
     Route: 048
     Dates: start: 20140221
  5. ADVATE [Suspect]
     Active Substance: ANTIHEMOPHILIC FACTOR, HUMAN RECOMBINANT
     Indication: FACTOR VIII DEFICIENCY
     Dosage: UNK
     Route: 042
     Dates: start: 20140217, end: 20140223

REACTIONS (5)
  - Lip haemorrhage [Not Recovered/Not Resolved]
  - Factor VIII inhibition [Unknown]
  - Contusion [Unknown]
  - Fall [Unknown]
  - Mouth ulceration [Unknown]

NARRATIVE: CASE EVENT DATE: 20140221
